FAERS Safety Report 7602087-1 (Version None)
Quarter: 2011Q3

REPORT INFORMATION
  Report Type: 
  Country: None (occurrence: None)
  Receive Date: 20110711
  Receipt Date: 20110627
  Transmission Date: 20111222
  Serious: Yes (Other)
  Sender: FDA-Public Use
  Company Number: IT-GENENTECH-321048

PATIENT
  Age: 24 Month
  Sex: Male

DRUGS (22)
  1. IFOSFAMIDE [Suspect]
     Indication: EPSTEIN-BARR VIRUS ASSOCIATED LYMPHOPROLIFERATIVE DISORDER
     Dosage: UNK
     Route: 065
  2. DAUNORUBICIN HCL [Suspect]
     Indication: EPSTEIN-BARR VIRUS ASSOCIATED LYMPHOPROLIFERATIVE DISORDER
     Dosage: UNK
     Route: 065
  3. CYCLOPHOSPHAMIDE [Suspect]
     Indication: EPSTEIN-BARR VIRUS ASSOCIATED LYMPHOPROLIFERATIVE DISORDER
     Dosage: 750 MG/M2, Q4W
     Route: 042
  4. CYCLOPHOSPHAMIDE [Suspect]
     Dosage: UNK
     Route: 042
  5. FLUDARABINE PHOSPHATE [Suspect]
     Indication: EPSTEIN-BARR VIRUS ASSOCIATED LYMPHOPROLIFERATIVE DISORDER
     Dosage: 30 MG/M2, Q4W
     Route: 042
  6. CYTARABINE [Suspect]
     Indication: EPSTEIN-BARR VIRUS ASSOCIATED LYMPHOPROLIFERATIVE DISORDER
     Dosage: UNK
     Route: 065
  7. CYTARABINE [Suspect]
     Dosage: UNK
     Route: 065
  8. RITUXIMAB [Suspect]
     Dosage: UNK
     Route: 042
  9. METHOTREXATE [Suspect]
     Dosage: UNK
     Route: 065
  10. CYTARABINE [Suspect]
     Dosage: UNK
     Route: 065
  11. ETOPOSIDE [Suspect]
     Indication: EPSTEIN-BARR VIRUS ASSOCIATED LYMPHOPROLIFERATIVE DISORDER
     Dosage: UNK
     Route: 065
  12. DEXAMETHASONE [Suspect]
     Indication: EPSTEIN-BARR VIRUS ASSOCIATED LYMPHOPROLIFERATIVE DISORDER
     Dosage: UNK
     Route: 065
  13. VINCRISTINE [Suspect]
     Dosage: 1.5 MG/M2, UNK
     Route: 065
  14. METHYLPREDNISOLONE [Suspect]
     Indication: PROPHYLAXIS
     Dosage: UNK
     Route: 037
  15. RITUXIMAB [Suspect]
     Indication: EPSTEIN-BARR VIRUS ASSOCIATED LYMPHOPROLIFERATIVE DISORDER
     Dosage: 375 MG/M2, Q4W
     Route: 042
  16. DOXORUBICIN HCL [Suspect]
     Indication: EPSTEIN-BARR VIRUS ASSOCIATED LYMPHOPROLIFERATIVE DISORDER
     Dosage: 30 MG/M2, Q4W
     Route: 042
  17. METHOTREXATE [Suspect]
     Dosage: UNK
     Route: 065
  18. METHOTREXATE [Suspect]
     Indication: EPSTEIN-BARR VIRUS ASSOCIATED LYMPHOPROLIFERATIVE DISORDER
     Dosage: UNK
     Route: 065
  19. VINCRISTINE [Suspect]
     Indication: EPSTEIN-BARR VIRUS ASSOCIATED LYMPHOPROLIFERATIVE DISORDER
     Dosage: 1.5 MG/M2, UNK
     Route: 065
  20. METHOTREXATE [Suspect]
     Dosage: UNK
     Route: 065
  21. DEXAMETHASONE [Suspect]
     Dosage: UNK
     Route: 065
  22. METHYLPREDNISOLONE [Suspect]
     Dosage: UNK
     Route: 037

REACTIONS (2)
  - NEUTROPENIA [None]
  - HAEMATOTOXICITY [None]
